FAERS Safety Report 12304607 (Version 8)
Quarter: 2018Q4

REPORT INFORMATION
  Report Type: Report from Study
  Country: DE (occurrence: DE)
  Receive Date: 20160426
  Receipt Date: 20181231
  Transmission Date: 20190204
  Serious: Yes (Hospitalization, Other)
  Sender: FDA-Public Use
  Company Number: PHHY2013DE142386

PATIENT
  Age: 43 Year
  Sex: Female
  Weight: 76 kg

DRUGS (4)
  1. GILENYA [Suspect]
     Active Substance: FINGOLIMOD HYDROCHLORIDE
     Indication: MULTIPLE SCLEROSIS
     Dosage: 0.5 MG, QD
     Route: 048
     Dates: start: 20130304
  2. FAMPYRA [Suspect]
     Active Substance: DALFAMPRIDINE
     Indication: GAIT DISTURBANCE
     Dosage: 10 MG, BID
     Route: 048
     Dates: start: 20111024
  3. FAMPYRA [Suspect]
     Active Substance: DALFAMPRIDINE
     Dosage: DAILY DOSE: 10 MG MILLIGRAM(S) EVERY DAY
     Route: 048
     Dates: start: 20111024, end: 20160402
  4. CRANBERRY//VACCINIUM MACROCARPON [Concomitant]
     Active Substance: CRANBERRY
     Indication: PROPHYLAXIS URINARY TRACT INFECTION
     Dosage: UNK, BID (1-0-1-0)
     Route: 048
     Dates: start: 20140617

REACTIONS (17)
  - Tongue biting [Unknown]
  - Somnolence [Unknown]
  - Epilepsy [Recovered/Resolved]
  - Muscle spasticity [Unknown]
  - Tonic clonic movements [Unknown]
  - Hypotonia [Unknown]
  - Demyelination [Unknown]
  - Loss of consciousness [Recovered/Resolved]
  - Cervical spinal stenosis [Unknown]
  - Amnesia [Recovering/Resolving]
  - Dizziness [Unknown]
  - Atrial fibrillation [Unknown]
  - Intervertebral disc degeneration [Unknown]
  - Expanded disability status scale score increased [Unknown]
  - Blood pressure increased [Unknown]
  - Road traffic accident [Recovered/Resolved]
  - Muscle rigidity [Unknown]

NARRATIVE: CASE EVENT DATE: 20130725
